FAERS Safety Report 5371134-2 (Version None)
Quarter: 2007Q2

REPORT INFORMATION
  Report Type: 
  Country: None (occurrence: None)
  Receive Date: 20070626
  Receipt Date: 20070620
  Transmission Date: 20071010
  Serious: Yes (Other)
  Sender: FDA-Public Use
  Company Number: ES-MERCK-0705ESP00022

PATIENT
  Age: 71 Year
  Sex: Female

DRUGS (12)
  1. EMEND [Suspect]
     Indication: PROPHYLAXIS OF NAUSEA AND VOMITING
     Route: 048
     Dates: start: 20070313, end: 20070313
  2. EMEND [Suspect]
     Route: 048
     Dates: start: 20070314, end: 20070315
  3. EMEND [Suspect]
     Route: 048
     Dates: start: 20070327, end: 20070327
  4. EMEND [Suspect]
     Route: 048
     Dates: start: 20070328, end: 20070328
  5. DEXAMETHASONE [Concomitant]
     Indication: PROPHYLAXIS OF NAUSEA AND VOMITING
     Route: 065
     Dates: start: 20070313
  6. DEXAMETHASONE [Concomitant]
     Route: 065
     Dates: start: 20070327
  7. ANTINEOPLASTIC (UNSPECIFIED) [Suspect]
     Indication: LUNG NEOPLASM MALIGNANT
     Route: 065
     Dates: start: 20070313
  8. ANTINEOPLASTIC (UNSPECIFIED) [Suspect]
     Route: 065
     Dates: start: 20070327
  9. CANDESARTAN CILEXETIL AND HYDROCHLOROTHIAZIDE [Concomitant]
     Route: 048
  10. DILTIAZEM HYDROCHLORIDE [Concomitant]
     Route: 048
  11. LORAZEPAM [Concomitant]
     Route: 048
  12. ACETAMINOPHEN [Concomitant]
     Route: 065

REACTIONS (5)
  - DYSPHAGIA [None]
  - HEADACHE [None]
  - MOUTH INJURY [None]
  - OEDEMA MOUTH [None]
  - SWELLING FACE [None]
